FAERS Safety Report 9905082 (Version 2)
Quarter: 2014Q2

REPORT INFORMATION
  Report Type: Spontaneous
  Country: JP (occurrence: None)
  Receive Date: 20140211
  Receipt Date: 20140410
  Transmission Date: 20141212
  Serious: Yes (Life-Threatening, Hospitalization)
  Sender: FDA-Public Use
  Company Number: ABR_01280_2013

PATIENT
  Age: 45 Year
  Sex: Female
  Weight: 58 kg

DRUGS (2)
  1. GLIADEL [Suspect]
     Indication: MALIGNANT GLIOMA
     Dosage: INTRACEREBRAL
     Dates: start: 20130614
  2. TREMODAL [Concomitant]

REACTIONS (2)
  - Epilepsy [None]
  - Subdural hygroma [None]
